FAERS Safety Report 5304866-2 (Version None)
Quarter: 2007Q2

REPORT INFORMATION
  Report Type: 
  Country: None (occurrence: None)
  Receive Date: 20070423
  Receipt Date: 20070413
  Transmission Date: 20071010
  Serious: Yes (Other)
  Sender: FDA-Public Use
  Company Number: NL-PFIZER INC-2007030188

PATIENT
  Sex: Male
  Weight: 72 kg

DRUGS (2)
  1. NORVASC [Suspect]
     Route: 048
     Dates: start: 20070131
  2. HAWTHORN [Concomitant]
     Route: 048

REACTIONS (1)
  - GLAUCOMA [None]
